FAERS Safety Report 8103314-7 (Version None)
Quarter: 2011Q4

REPORT INFORMATION
  Report Type: 
  Country: None (occurrence: None)
  Receive Date: 20111222
  Receipt Date: 20110913
  Transmission Date: 20120403
  Serious: Yes (Hospitalization)
  Sender: FDA-Public Use
  Company Number: UTC-010191

PATIENT
  Age: 65 Year
  Sex: Female
  Weight: 86.4 kg

DRUGS (3)
  1. COUMADIN [Suspect]
  2. TYVASO [Suspect]
     Indication: COR PULMONALE CHRONIC
     Dosage: 72 MCG (18 MCG,4 IN 1 D),INHALATION
     Route: 055
     Dates: start: 20110818, end: 20110824
  3. BLOOD PRESSURE MEDICATION(ANTIHYPERTENSIVES) (NULL) [Suspect]

REACTIONS (3)
  - FALL [None]
  - UNRESPONSIVE TO STIMULI [None]
  - HYPOTENSION [None]
